FAERS Safety Report 8623840 (Version 3)
Quarter: 2013Q1

REPORT INFORMATION
  Report Type: Spontaneous
  Country: IT (occurrence: IT)
  Receive Date: 20120620
  Receipt Date: 20130204
  Transmission Date: 20140127
  Serious: Yes (Hospitalization, Other)
  Sender: FDA-Public Use
  Company Number: IT-PFIZER INC-2012147129

PATIENT
  Age: 58 Year
  Sex: Male

DRUGS (1)
  1. ZOLOFT [Suspect]
     Dosage: 800 MG, TOTAL
     Route: 048
     Dates: start: 20120613, end: 201206

REACTIONS (4)
  - Intentional overdose [Recovering/Resolving]
  - Somnolence [Recovering/Resolving]
  - Heart rate increased [Unknown]
  - Oxygen saturation decreased [Recovered/Resolved]
